FAERS Safety Report 21760142 (Version 1)
Quarter: 2022Q4

REPORT INFORMATION
  Report Type: Spontaneous
  Country: US (occurrence: None)
  Receive Date: 20221220
  Receipt Date: 20221220
  Transmission Date: 20230112
  Serious: Yes (Hospitalization, Disabling)
  Sender: FDA-Public Use
  Company Number: None

PATIENT
  Age: 83 Year
  Sex: Male
  Weight: 111 kg

DRUGS (1)
  1. WARFARIN [Suspect]
     Active Substance: WARFARIN
     Indication: Atrial fibrillation
     Dosage: FREQUENCY : DAILY;?
     Route: 048
     Dates: start: 20220101

REACTIONS (7)
  - Mental status changes [None]
  - Fall [None]
  - Subdural haematoma [None]
  - Cerebral mass effect [None]
  - Subarachnoid haematoma [None]
  - Intraventricular haemorrhage [None]
  - Cerebral venous thrombosis [None]

NARRATIVE: CASE EVENT DATE: 20221126
